FAERS Safety Report 9926221 (Version 2)
Quarter: 2014Q1

REPORT INFORMATION
  Report Type: Spontaneous
  Country: US (occurrence: US)
  Receive Date: 20140226
  Receipt Date: 20140305
  Transmission Date: 20141002
  Serious: No
  Sender: FDA-Public Use
  Company Number: US-TEVA-465423USA

PATIENT
  Age: 76 Year
  Sex: Male

DRUGS (1)
  1. PROAIR HFA [Suspect]
     Indication: PNEUMONIA
     Dates: start: 20140211

REACTIONS (4)
  - Joint swelling [Not Recovered/Not Resolved]
  - Rash [Not Recovered/Not Resolved]
  - Rash [Not Recovered/Not Resolved]
  - Headache [Not Recovered/Not Resolved]
